FAERS Safety Report 10375631 (Version 1)
Quarter: 2014Q3

REPORT INFORMATION
  Report Type: Spontaneous
  Country: US (occurrence: US)
  Receive Date: 20140811
  Receipt Date: 20140811
  Transmission Date: 20150326
  Serious: No
  Sender: FDA-Public Use
  Company Number: US-PFIZER INC-2014219360

PATIENT
  Sex: Male

DRUGS (5)
  1. LYRICA [Suspect]
     Active Substance: PREGABALIN
     Indication: DIABETIC NEUROPATHY
     Dosage: 75 MG, UNK
  2. LYRICA [Suspect]
     Active Substance: PREGABALIN
     Dosage: 2 OF THE 150^S, A DAY
  3. LYRICA [Suspect]
     Active Substance: PREGABALIN
     Dosage: 3 OF THE 150^S, A DAY
  4. LYRICA [Suspect]
     Active Substance: PREGABALIN
     Dosage: 4 OF THE 150^S, A DAY
  5. LYRICA [Suspect]
     Active Substance: PREGABALIN
     Dosage: 300, TWICE A DAY

REACTIONS (1)
  - Drug ineffective [Unknown]
